FAERS Safety Report 13258011 (Version 1)
Quarter: 2017Q1

REPORT INFORMATION
  Report Type: Spontaneous
  Country: US (occurrence: US)
  Receive Date: 20170221
  Receipt Date: 20170221
  Transmission Date: 20170428
  Serious: No
  Sender: FDA-Public Use
  Company Number: US-PERRIGO-16US019173

PATIENT
  Age: 63 Year
  Sex: Female
  Weight: 51.7 kg

DRUGS (3)
  1. KETOCONAZOLE. [Suspect]
     Active Substance: KETOCONAZOLE
     Dosage: 1 APPLICATION, TWICE WEEKLY
     Route: 061
     Dates: start: 201603, end: 201603
  2. KETOCONAZOLE. [Suspect]
     Active Substance: KETOCONAZOLE
     Indication: FUNGAL INFECTION
     Dosage: 1 APPLICATION, THREE TIMES WEEKLY
     Route: 061
     Dates: start: 201601, end: 201603
  3. KETOCONAZOLE. [Suspect]
     Active Substance: KETOCONAZOLE
     Dosage: 1 APPLICATION, WEEKLY
     Route: 061
     Dates: start: 201604, end: 201606

REACTIONS (4)
  - Application site erythema [Recovered/Resolved]
  - Application site pain [Recovered/Resolved]
  - Alopecia [Not Recovered/Not Resolved]
  - Application site pruritus [Recovered/Resolved]

NARRATIVE: CASE EVENT DATE: 201602
